FAERS Safety Report 4356762-5 (Version None)
Quarter: 2004Q2

REPORT INFORMATION
  Report Type: 
  Country: None (occurrence: None)
  Receive Date: 20040507
  Receipt Date: 20040423
  Transmission Date: 20050107
  Serious: Yes (Hospitalization, Other)
  Sender: FDA-Public Use
  Company Number: US-SHR-04-024273

PATIENT
  Age: 64 Year
  Sex: Male
  Weight: 81.1 kg

DRUGS (2)
  1. GM-CSF (SARGRAMOSTIM) INJECTION [Suspect]
     Indication: ACUTE MYELOID LEUKAEMIA
     Dosage: 125 MG/M2/D X 14D Q28D, SUBCUTANEOUS
     Route: 058
     Dates: start: 20040406, end: 20040418
  2. BRYOSTATIN 1  /UNK/ (BRYOSTATIN 1) [Suspect]
     Indication: ACUTE MYELOID LEUKAEMIA
     Dosage: 18MCG/M2/D ON D1  4 Q28D, INTRAVENOUS
     Route: 042
     Dates: start: 20040406

REACTIONS (11)
  - BACTERIAL INFECTION [None]
  - BLOOD CULTURE POSITIVE [None]
  - BONE PAIN [None]
  - CENTRAL LINE INFECTION [None]
  - FEBRILE NEUTROPENIA [None]
  - LUNG INFILTRATION [None]
  - LUNG NEOPLASM [None]
  - MYOSITIS [None]
  - PNEUMONITIS [None]
  - PULMONARY MYCOSIS [None]
  - REFUSAL OF TREATMENT BY PATIENT [None]
